FAERS Safety Report 9023460 (Version 2)
Quarter: 2013Q1

REPORT INFORMATION
  Report Type: Spontaneous
  Country: US (occurrence: US)
  Receive Date: 20130121
  Receipt Date: 20130122
  Transmission Date: 20140127
  Serious: Yes (Disabling)
  Sender: FDA-Public Use
  Company Number: US-ABBOTT-13P-163-1038429-00

PATIENT
  Sex: Male
  Weight: 78.09 kg

DRUGS (5)
  1. DEPAKOTE ER [Suspect]
     Indication: BIPOLAR DISORDER
     Dates: start: 200612, end: 201003
  2. TYSABRI [Suspect]
     Indication: SECONDARY PROGRESSIVE MULTIPLE SCLEROSIS
     Route: 042
     Dates: start: 201004, end: 201107
  3. TYSABRI [Suspect]
     Dates: start: 201204
  4. LAMICTAL [Concomitant]
     Indication: BIPOLAR DISORDER
  5. LITHIUM [Concomitant]
     Indication: BIPOLAR DISORDER

REACTIONS (14)
  - Chorea [Not Recovered/Not Resolved]
  - Ataxia [Not Recovered/Not Resolved]
  - Encephalopathy [Not Recovered/Not Resolved]
  - Secondary progressive multiple sclerosis [Not Recovered/Not Resolved]
  - Hypoaesthesia [Not Recovered/Not Resolved]
  - Gait disturbance [Not Recovered/Not Resolved]
  - Abasia [Not Recovered/Not Resolved]
  - Fatigue [Recovered/Resolved]
  - Diplopia [Not Recovered/Not Resolved]
  - Somnolence [Recovered/Resolved]
  - Tremor [Not Recovered/Not Resolved]
  - Fall [Recovered/Resolved]
  - Headache [Not Recovered/Not Resolved]
  - Blister [Recovered/Resolved]
